FAERS Safety Report 18750501 (Version 1)
Quarter: 2021Q1

REPORT INFORMATION
  Report Type: Spontaneous
  Country: US (occurrence: US)
  Receive Date: 20210118
  Receipt Date: 20210118
  Transmission Date: 20210419
  Serious: Yes (Hospitalization)
  Sender: FDA-Public Use
  Company Number: US-BIOVITRUM-2021US0446

PATIENT
  Sex: Male
  Weight: 10 kg

DRUGS (6)
  1. SYNAGIS [Suspect]
     Active Substance: PALIVIZUMAB
     Indication: TACHYCARDIA
  2. SYNAGIS [Suspect]
     Active Substance: PALIVIZUMAB
     Indication: VENTRICULAR TACHYCARDIA
  3. SYNAGIS [Suspect]
     Active Substance: PALIVIZUMAB
     Indication: CONGESTIVE CARDIOMYOPATHY
  4. SYNAGIS [Suspect]
     Active Substance: PALIVIZUMAB
     Indication: EMBOLISM VENOUS
  5. SYNAGIS [Suspect]
     Active Substance: PALIVIZUMAB
     Indication: HEPATOMEGALY
     Dosage: 100MG/1ML VL LIQUID
     Route: 030
  6. SYNAGIS [Suspect]
     Active Substance: PALIVIZUMAB
     Indication: CONDUCTION DISORDER

REACTIONS (2)
  - Off label use [Unknown]
  - Heart rate increased [Unknown]
